FAERS Safety Report 9260491 (Version 2)
Quarter: 2013Q2

REPORT INFORMATION
  Report Type: Spontaneous
  Country: US (occurrence: US)
  Receive Date: 20130429
  Receipt Date: 20130613
  Transmission Date: 20140414
  Serious: Yes (Hospitalization)
  Sender: FDA-Public Use
  Company Number: US-BAYER-2013-052070

PATIENT
  Age: 23 Year
  Sex: Female

DRUGS (5)
  1. YASMIN [Suspect]
  2. YAZ [Suspect]
  3. FEXOFENADINE [Concomitant]
     Dosage: 180 MG, UNK
  4. FLUOXETINE [Concomitant]
     Dosage: 10 MG, UNK
  5. PROZAC [Concomitant]
     Indication: DEPRESSION

REACTIONS (1)
  - Pulmonary embolism [None]
